FAERS Safety Report 4796198-6 (Version None)
Quarter: 2005Q4

REPORT INFORMATION
  Report Type: 
  Country: None (occurrence: None)
  Receive Date: 20051007
  Receipt Date: 20050930
  Transmission Date: 20060501
  Serious: Yes (Death, Hospitalization, Other)
  Sender: FDA-Public Use
  Company Number: 163-20785-05070263

PATIENT
  Age: 74 Year
  Sex: Female

DRUGS (4)
  1. THALOMID [Suspect]
     Indication: MULTIPLE MYELOMA
     Dosage: 50 MG, QD, ORAL
     Route: 048
     Dates: start: 20050105, end: 20050101
  2. DIGOXIN [Concomitant]
  3. SYNTHROID [Concomitant]
  4. DIFLUCAN [Concomitant]

REACTIONS (26)
  - ANAEMIA OF CHRONIC DISEASE [None]
  - APHASIA [None]
  - ATELECTASIS [None]
  - ATRIOVENTRICULAR BLOCK FIRST DEGREE [None]
  - BLOOD ALBUMIN DECREASED [None]
  - BLOOD BICARBONATE DECREASED [None]
  - BLOOD CREATINE INCREASED [None]
  - BLOOD GLUCOSE DECREASED [None]
  - CARBON DIOXIDE DECREASED [None]
  - CARDIAC FAILURE CONGESTIVE [None]
  - COMA [None]
  - DISEASE PROGRESSION [None]
  - DYSPNOEA EXERTIONAL [None]
  - ECCHYMOSIS [None]
  - FAILURE TO THRIVE [None]
  - GASTRIC ULCER [None]
  - HYPOTHYROIDISM [None]
  - INTERTRIGO CANDIDA [None]
  - MULTIPLE MYELOMA [None]
  - PULMONARY OEDEMA [None]
  - PUPIL FIXED [None]
  - QRS AXIS ABNORMAL [None]
  - RENAL FAILURE [None]
  - STAPHYLOCOCCAL SEPSIS [None]
  - THERAPEUTIC AGENT TOXICITY [None]
  - UNRESPONSIVE TO PAIN STIMULI [None]
